FAERS Safety Report 13116458 (Version 2)
Quarter: 2017Q1

REPORT INFORMATION
  Report Type: Spontaneous
  Country: GB (occurrence: GB)
  Receive Date: 20170116
  Receipt Date: 20170204
  Transmission Date: 20170428
  Serious: Yes (Hospitalization)
  Sender: FDA-Public Use
  Company Number: GB-ACCORD-047237

PATIENT
  Age: 58 Year
  Sex: Female

DRUGS (17)
  1. METHOTREXATE. [Suspect]
     Active Substance: METHOTREXATE
     Indication: NEUROSARCOIDOSIS
     Route: 048
     Dates: start: 201610, end: 201611
  2. CYCLIZINE [Concomitant]
     Active Substance: CYCLIZINE
  3. GABAPENTIN. [Concomitant]
     Active Substance: GABAPENTIN
  4. OXYCODONE/OXYCODONE HYDROCHLORIDE/OXYCODONE PECTINATE/OXYCODONE TEREPHTHALATE [Concomitant]
  5. ALENDRONIC ACID [Concomitant]
     Active Substance: ALENDRONIC ACID
  6. IRON [Concomitant]
     Active Substance: IRON
  7. FOLIC ACID. [Concomitant]
     Active Substance: FOLIC ACID
  8. DOCUSATE/DOCUSATE CALCIUM/DOCUSATE POTASSIUM/DOCUSATE SODIUM [Concomitant]
  9. NAPROXEN. [Concomitant]
     Active Substance: NAPROXEN
  10. ADCAL-D3 [Concomitant]
     Active Substance: CALCIUM CARBONATE\CHOLECALCIFEROL
  11. LANSOPRAZOLE. [Concomitant]
     Active Substance: LANSOPRAZOLE
  12. VENLAFAXINE/VENLAFAXINE HYDROCHLORIDE [Concomitant]
  13. MORPHINE [Concomitant]
     Active Substance: MORPHINE
  14. PARACETAMOL [Concomitant]
     Active Substance: ACETAMINOPHEN
  15. PREDNISOLONE. [Concomitant]
     Active Substance: PREDNISOLONE
  16. DOXYCYCLINE. [Concomitant]
     Active Substance: DOXYCYCLINE
     Indication: LOWER RESPIRATORY TRACT INFECTION
  17. LAXIDO [Concomitant]
     Active Substance: POLYETHYLENE GLYCOL 3350\POTASSIUM CHLORIDE\SODIUM BICARBONATE\SODIUM CHLORIDE

REACTIONS (5)
  - Pneumonitis [Recovered/Resolved]
  - Respiratory failure [Unknown]
  - Lower respiratory tract infection [Unknown]
  - Off label use [Unknown]
  - Acute respiratory distress syndrome [Unknown]

NARRATIVE: CASE EVENT DATE: 20161123
